FAERS Safety Report 6337531-3 (Version None)
Quarter: 2009Q3

REPORT INFORMATION
  Report Type: 
  Country: None (occurrence: None)
  Receive Date: 20090902
  Receipt Date: 20090825
  Transmission Date: 20100115
  Serious: Yes (Hospitalization)
  Sender: FDA-Public Use
  Company Number: CA-AMGEN-QUU361729

PATIENT
  Age: 44 Year
  Sex: Female
  Weight: 90 kg

DRUGS (8)
  1. ENBREL [Suspect]
     Indication: DRUG USE FOR UNKNOWN INDICATION
     Route: 058
  2. ASPIRIN [Concomitant]
  3. CALCIUM WITH VITAMIN D [Concomitant]
  4. PRILOSEC [Concomitant]
  5. MOTRIN [Concomitant]
     Route: 048
  6. PANTOPRAZOLE SODIUM [Concomitant]
  7. PREDNISONE [Concomitant]
     Route: 048
  8. SERC [Concomitant]

REACTIONS (7)
  - BLOOD ALKALINE PHOSPHATASE INCREASED [None]
  - BLOOD AMYLASE INCREASED [None]
  - BLOOD BILIRUBIN INCREASED [None]
  - CHOLECYSTITIS ACUTE [None]
  - GAMMA-GLUTAMYLTRANSFERASE INCREASED [None]
  - LIPASE INCREASED [None]
  - PANCREATITIS [None]
